FAERS Safety Report 16592242 (Version 1)
Quarter: 2019Q3

REPORT INFORMATION
  Report Type: Spontaneous
  Country: ES (occurrence: ES)
  Receive Date: 20190718
  Receipt Date: 20190718
  Transmission Date: 20191004
  Serious: Yes (Other)
  Sender: FDA-Public Use
  Company Number: ES-AMGEN-ESPNI2019112473

PATIENT
  Age: 84 Year
  Sex: Female

DRUGS (1)
  1. PROLIA [Suspect]
     Active Substance: DENOSUMAB
     Indication: OSTEOPOROSIS
     Dosage: 60 MILLIGRAM, EVERY 26 WEEKS
     Route: 058
     Dates: start: 20190102

REACTIONS (2)
  - Pneumonia pseudomonal [Unknown]
  - Renal cancer [Unknown]

NARRATIVE: CASE EVENT DATE: 20190217
